FAERS Safety Report 4602633-6 (Version None)
Quarter: 2005Q1

REPORT INFORMATION
  Report Type: 
  Country: None (occurrence: None)
  Receive Date: 20050307
  Receipt Date: 20050218
  Transmission Date: 20050727
  Serious: Yes (Hospitalization)
  Sender: FDA-Public Use
  Company Number: 2003IM000204

PATIENT
  Age: 58 Year
  Sex: Female
  Weight: 89.8122 kg

DRUGS (16)
  1. INTERFERON GAMMA-1B [Suspect]
     Indication: OVARIAN CANCER
     Dosage: 100 UG, TIW, SUBCUTANEOUS
     Route: 058
     Dates: start: 20030219
  2. CARBOPLATIN [Suspect]
     Indication: OVARIAN CANCER
     Dosage: 400 MG, Q3W, INTRAVENOUS
     Route: 042
     Dates: start: 20030219, end: 20030219
  3. PACLITAXEL [Suspect]
     Indication: OVARIAN CANCER
     Dosage: 325 MG, Q3W, INTRAVENOUS
     Route: 042
     Dates: start: 20030219, end: 20030219
  4. INSULIN [Concomitant]
  5. SYNTHROID [Concomitant]
  6. ELAVIL [Concomitant]
  7. ACTON [Concomitant]
  8. COZAAR [Concomitant]
  9. ALTACE [Concomitant]
  10. COMPAZINE [Concomitant]
  11. CIPROFLOXACIN HCL [Concomitant]
  12. ATIVAN [Concomitant]
  13. KYTRIL [Concomitant]
  14. DECADRON [Concomitant]
  15. BENADRYL [Concomitant]
  16. MAXZIDE [Concomitant]

REACTIONS (3)
  - BLOOD PRESSURE ABNORMAL [None]
  - INCISION SITE COMPLICATION [None]
  - ORTHOSTATIC HYPOTENSION [None]
